FAERS Safety Report 9156592 (Version 1)
Quarter: 2013Q1

REPORT INFORMATION
  Report Type: Spontaneous
  Country: US (occurrence: None)
  Receive Date: 20130308
  Receipt Date: 20130308
  Transmission Date: 20140127
  Serious: Yes (Hospitalization)
  Sender: FDA-Public Use
  Company Number: None

PATIENT
  Sex: Female
  Weight: 123.7 kg

DRUGS (1)
  1. CYTARABINE [Suspect]
     Route: 042
     Dates: end: 20130224

REACTIONS (5)
  - Haematuria [None]
  - Dysuria [None]
  - Thrombocytopenia [None]
  - Anaemia [None]
  - Leukopenia [None]
